FAERS Safety Report 21455838 (Version 1)
Quarter: 2022Q4

REPORT INFORMATION
  Report Type: Spontaneous
  Country: US (occurrence: US)
  Receive Date: 20221014
  Receipt Date: 20221014
  Transmission Date: 20230113
  Serious: No
  Sender: FDA-Public Use
  Company Number: US-CHIESI-2022CHF02716

PATIENT
  Sex: Male

DRUGS (3)
  1. FERRIPROX [Suspect]
     Active Substance: DEFERIPRONE
     Indication: Product used for unknown indication
     Dosage: UNK
     Dates: start: 2022
  2. FERRIPROX [Suspect]
     Active Substance: DEFERIPRONE
     Dosage: 45 MILLIGRAM/KILOGRAM
  3. FERRIPROX [Suspect]
     Active Substance: DEFERIPRONE
     Dosage: 2000 MILLIGRAM, QD
     Dates: start: 20220403, end: 202205

REACTIONS (3)
  - Alanine aminotransferase increased [Unknown]
  - Aspartate aminotransferase increased [Unknown]
  - Product dose omission issue [Recovered/Resolved]

NARRATIVE: CASE EVENT DATE: 20220101
